FAERS Safety Report 5240805-0 (Version None)
Quarter: 2007Q1

REPORT INFORMATION
  Report Type: 
  Country: None (occurrence: None)
  Receive Date: 20070219
  Receipt Date: 20070206
  Transmission Date: 20070707
  Serious: Yes (Hospitalization, Other)
  Sender: FDA-Public Use
  Company Number: US-ELI_LILLY_AND_COMPANY-US200702001940

PATIENT
  Age: 50 Year
  Sex: Female
  Weight: 45.351 kg

DRUGS (1)
  1. CYMBALTA [Suspect]
     Dosage: 60 MG, UNK

REACTIONS (8)
  - ABNORMAL BEHAVIOUR [None]
  - DRUG INTOLERANCE [None]
  - HYPOTHYROIDISM [None]
  - LETHARGY [None]
  - MAJOR DEPRESSION [None]
  - MIGRAINE [None]
  - SUICIDAL IDEATION [None]
  - SUICIDE ATTEMPT [None]
